FAERS Safety Report 5366935-0 (Version None)
Quarter: 2007Q2

REPORT INFORMATION
  Report Type: 
  Country: None (occurrence: None)
  Receive Date: 20070622
  Receipt Date: 20070108
  Transmission Date: 20071010
  Serious: No
  Sender: FDA-Public Use
  Company Number: US-ASTRAZENECA-2007UW00423

PATIENT
  Age: 13 Year
  Sex: Female
  Weight: 56.7 kg

DRUGS (2)
  1. RHINOCORT [Suspect]
     Indication: NASAL INFLAMMATION
     Dosage: 1 SPRAY ONCE DAILY
     Route: 045
     Dates: start: 20061201
  2. ANTIHISTAMINES [Concomitant]

REACTIONS (1)
  - OLIGOMENORRHOEA [None]
